FAERS Safety Report 18100816 (Version 1)
Quarter: 2020Q3

REPORT INFORMATION
  Report Type: Spontaneous
  Country: US (occurrence: US)
  Receive Date: 20200731
  Receipt Date: 20200731
  Transmission Date: 20201103
  Serious: Yes (Hospitalization, Other)
  Sender: FDA-Public Use
  Company Number: US-PURDUE-USA-2020-0160176

PATIENT
  Sex: Male

DRUGS (5)
  1. PERCOCET [Suspect]
     Active Substance: ACETAMINOPHEN\OXYCODONE HYDROCHLORIDE
     Indication: PAIN
     Dosage: 7.5?325 MG, 1?2 TABLETS, Q4H PRN
     Route: 048
  2. TRAMADOL. [Suspect]
     Active Substance: TRAMADOL
     Indication: PAIN
     Dosage: UNKNOWN
     Route: 048
  3. OXYCODONE/ ACETAMINOPHEN TABLETS [Suspect]
     Active Substance: ACETAMINOPHEN\OXYCODONE HYDROCHLORIDE
     Indication: PAIN
     Dosage: 5?325 MG, 1?2 TABLETS, Q4H PRN
     Route: 048
  4. OXYCODONE HCL CR TABLETS (SIMILAR TO NDA 22?272) [Suspect]
     Active Substance: OXYCODONE HYDROCHLORIDE
     Indication: PAIN
     Dosage: UNKNOWN
     Route: 048
  5. OXYCODONE HCL TABLETS (RHODES 91?490) [Suspect]
     Active Substance: OXYCODONE HYDROCHLORIDE
     Indication: PAIN
     Dosage: UNKNOWN
     Route: 048

REACTIONS (21)
  - Drug withdrawal syndrome [Unknown]
  - Pruritus [Unknown]
  - Asthenia [Unknown]
  - Hyperglycaemia [Unknown]
  - Wound complication [Unknown]
  - Impaired work ability [Unknown]
  - Insomnia [Unknown]
  - Depression [Unknown]
  - Hyperhidrosis [Unknown]
  - Anaemia [Unknown]
  - Overdose [Unknown]
  - Dry mouth [Unknown]
  - Drug tolerance [Unknown]
  - Nausea [Unknown]
  - Vomiting [Unknown]
  - Confusional state [Unknown]
  - Drug dependence [Unknown]
  - Extremity contracture [Unknown]
  - Leukocytosis [Unknown]
  - Pain threshold decreased [Unknown]
  - Dizziness [Unknown]
